FAERS Safety Report 17518810 (Version 1)
Quarter: 2020Q1

REPORT INFORMATION
  Report Type: Spontaneous
  Country: DE (occurrence: DE)
  Receive Date: 20200309
  Receipt Date: 20200309
  Transmission Date: 20200409
  Serious: Yes (Other)
  Sender: FDA-Public Use
  Company Number: NVSC2020DE045187

PATIENT
  Sex: Female

DRUGS (3)
  1. CYCLOPHOSPHAMIDE. [Suspect]
     Active Substance: CYCLOPHOSPHAMIDE
     Indication: NEPHRITIS
     Dosage: 750 MG/M2 (6 X 750 MG/M2) TOTAL DOSE 1600 MG ABSOLUT, CUMULATIVE DOSE = 9600 MG (SHOCK THERAPY)
     Route: 065
     Dates: start: 201808, end: 201901
  2. PREDNISOLONE. [Suspect]
     Active Substance: PREDNISOLONE
     Indication: NEPHRITIS
     Dosage: 500 MG, UNKNOWN
     Route: 065
     Dates: start: 20180731, end: 20180802
  3. VOCADO HCT [Concomitant]
     Active Substance: AMLODIPINE BESYLATE\HYDROCHLOROTHIAZIDE\OLMESARTAN MEDOXOMIL
     Indication: HYPERTENSION
     Dosage: UNK
     Route: 065

REACTIONS (6)
  - Nephritis [Not Recovered/Not Resolved]
  - Urinary tract infection bacterial [Unknown]
  - Venous thrombosis [Unknown]
  - Glomerular filtration rate decreased [Unknown]
  - Urinary tract infection fungal [Unknown]
  - Nephrotic syndrome [Unknown]

NARRATIVE: CASE EVENT DATE: 20180929
